FAERS Safety Report 18878940 (Version 1)
Quarter: 2021Q1

REPORT INFORMATION
  Report Type: Spontaneous
  Country: DE (occurrence: DE)
  Receive Date: 20210211
  Receipt Date: 20210211
  Transmission Date: 20210420
  Serious: Yes (Other)
  Sender: FDA-Public Use
  Company Number: DE-ESPERIONTHERAPEUTICS-2021DEU00270

PATIENT
  Age: 62 Year
  Sex: Male
  Weight: 87 kg

DRUGS (11)
  1. ACETYLSALICYLIC ACID [Concomitant]
     Active Substance: ASPIRIN
     Indication: PROPHYLAXIS
     Dosage: 100 MILLIGRAM
     Route: 048
  2. METOPROLOL. [Concomitant]
     Active Substance: METOPROLOL
     Indication: PROPHYLAXIS
     Dosage: 47.5 MILLIGRAM, Q12H
     Route: 048
  3. PANTOZOL [Concomitant]
     Active Substance: PANTOPRAZOLE SODIUM
     Indication: PROPHYLAXIS
     Dosage: 20 MILLIGRAM, QD
     Route: 048
  4. BICANORM [Concomitant]
     Active Substance: SODIUM BICARBONATE
     Indication: METABOLIC DISORDER
     Dosage: 1 GRAM, QD
     Route: 065
  5. EZETIMIBE. [Concomitant]
     Active Substance: EZETIMIBE
     Indication: HYPERCHOLESTEROLAEMIA
     Dosage: 10 MILLIGRAM, QD
     Route: 048
  6. OMACOR [Concomitant]
     Active Substance: OMEGA-3-ACID ETHYL ESTERS
     Indication: METABOLIC DISORDER
     Dosage: 2 GRAM, QD
     Route: 065
  7. NILEMDO [Suspect]
     Active Substance: BEMPEDOIC ACID
     Indication: HYPERCHOLESTEROLAEMIA
     Dosage: 180 MILLIGRAM, QD
     Route: 048
     Dates: start: 20201123, end: 20201208
  8. ALLOPURINOL. [Concomitant]
     Active Substance: ALLOPURINOL
     Indication: HYPERURICAEMIA
     Dosage: 300 MILLIGRAM, QD
     Route: 048
  9. ENTRESTO [Concomitant]
     Active Substance: SACUBITRIL\VALSARTAN
     Indication: CARDIAC FAILURE
     Dosage: 49/51 MG, BID
     Route: 048
  10. HYDROCHLOROTHIAZID [Concomitant]
     Active Substance: HYDROCHLOROTHIAZIDE
     Indication: CARDIAC FAILURE
     Dosage: 12.5 MILLIGRAM, QD
     Route: 048
  11. EPLERENONE. [Concomitant]
     Active Substance: EPLERENONE
     Indication: CARDIAC FAILURE
     Dosage: 25 MILLIGRAM, QD
     Route: 048

REACTIONS (7)
  - Glomerular filtration rate decreased [Unknown]
  - Joint swelling [Recovering/Resolving]
  - Blood creatinine abnormal [Recovered/Resolved]
  - Pruritus [Unknown]
  - Creatinine renal clearance decreased [Recovered/Resolved]
  - Blood uric acid abnormal [Recovered/Resolved]
  - Gout [Recovering/Resolving]

NARRATIVE: CASE EVENT DATE: 20201203
